FAERS Safety Report 13261079 (Version 1)
Quarter: 2017Q1

REPORT INFORMATION
  Report Type: Spontaneous
  Country: DK (occurrence: DK)
  Receive Date: 20170222
  Receipt Date: 20170222
  Transmission Date: 20170428
  Serious: Yes (Hospitalization)
  Sender: FDA-Public Use
  Company Number: DK-TEVA-2016-10129

PATIENT
  Age: 41 Year
  Sex: Female

DRUGS (1)
  1. TERBINAFIN ACTAVIS 250 MG [Suspect]
     Active Substance: TERBINAFINE
     Indication: FUNGAL INFECTION
     Dosage: 250 MG, DAILY (STRENGTH: 250)
     Route: 048
     Dates: start: 20150720, end: 20150810

REACTIONS (12)
  - Malaise [Unknown]
  - Skin lesion [Unknown]
  - Hypersensitivity [Unknown]
  - Pruritus [Unknown]
  - Pain [Unknown]
  - Pyrexia [Unknown]
  - Pain in extremity [Recovered/Resolved]
  - Skin exfoliation [Unknown]
  - Cutaneous lupus erythematosus [Recovered/Resolved with Sequelae]
  - Chills [Unknown]
  - Generalised erythema [Unknown]
  - Lymphadenopathy [Unknown]

NARRATIVE: CASE EVENT DATE: 201508
